FAERS Safety Report 5144244-2 (Version None)
Quarter: 2006Q4

REPORT INFORMATION
  Report Type: 
  Country: None (occurrence: None)
  Receive Date: 20061030
  Receipt Date: 20061018
  Transmission Date: 20070319
  Serious: No
  Sender: FDA-Public Use
  Company Number: FR-2006-031884

PATIENT
  Age: 45 Year
  Sex: Female

DRUGS (1)
  1. MIRENA [Suspect]
     Indication: CONTRACEPTION
     Dosage: 20 UG/DAY, CONT, INTRA-UTERINE
     Route: 015
     Dates: start: 20050701, end: 20060926

REACTIONS (2)
  - IUCD COMPLICATION [None]
  - PROCEDURAL COMPLICATION [None]
